FAERS Safety Report 18689469 (Version 3)
Quarter: 2021Q1

REPORT INFORMATION
  Report Type: Report from Study
  Country: CA (occurrence: CA)
  Receive Date: 20201231
  Receipt Date: 20210125
  Transmission Date: 20210419
  Serious: Yes (Hospitalization)
  Sender: FDA-Public Use
  Company Number: CA-JNJFOC-20201247453

PATIENT
  Age: 83 Year
  Sex: Female
  Weight: 40.86 kg

DRUGS (2)
  1. STELARA [Suspect]
     Active Substance: USTEKINUMAB
     Indication: CROHN^S DISEASE
     Dosage: ON 15?JAN?2021, THE PATIENT RECEIVED 11TH USTEKINUMAB INJECTION FOR DOSE OF 90 MG.
     Route: 058
     Dates: start: 20190503, end: 20201007
  2. STELARA [Suspect]
     Active Substance: USTEKINUMAB
     Route: 058
     Dates: start: 20210107

REACTIONS (11)
  - Amnesia [Unknown]
  - Weight decreased [Unknown]
  - Abdominal pain [Unknown]
  - Anal incontinence [Not Recovered/Not Resolved]
  - Decreased appetite [Unknown]
  - Diarrhoea [Not Recovered/Not Resolved]
  - Product use issue [Unknown]
  - Lung neoplasm malignant [Unknown]
  - Pneumonia [Unknown]
  - Off label use [Unknown]
  - Confusional state [Unknown]

NARRATIVE: CASE EVENT DATE: 202011
